FAERS Safety Report 8551495-3 (Version None)
Quarter: 2012Q3

REPORT INFORMATION
  Report Type: 
  Country: None (occurrence: None)
  Receive Date: 20120730
  Receipt Date: 20120724
  Transmission Date: 20120928
  Serious: Yes (Hospitalization)
  Sender: FDA-Public Use
  Company Number: AU-ALEXION PHARMACEUTICALS INC.-A201201291

PATIENT
  Sex: Male
  Weight: 102.7 kg

DRUGS (3)
  1. PHENOXYMETHYLPENICILLIN [Concomitant]
     Indication: PROPHYLAXIS
     Dosage: 500 MG, QD (INSTEAD OF THE RECOMMENDED 500 MG BD)
  2. ABBOCILLIN-G [Concomitant]
     Indication: ANTIBIOTIC PROPHYLAXIS
     Dosage: 500 MG, BID - NOT FULLY COMPLIANT USUALLY ONLY TAKES QD
     Dates: start: 20110603
  3. SOLIRIS [Suspect]
     Dosage: 900 MG, Q2W
     Route: 042
     Dates: start: 20090619

REACTIONS (1)
  - MENINGOCOCCAL INFECTION [None]
